FAERS Safety Report 11452288 (Version 1)
Quarter: 2015Q3

REPORT INFORMATION
  Report Type: Spontaneous
  Country: US (occurrence: US)
  Receive Date: 20150831
  Receipt Date: 20150831
  Transmission Date: 20151125
  Serious: Yes (Other)
  Sender: FDA-Public Use
  Company Number: US-ELI_LILLY_AND_COMPANY-US200908006298

PATIENT
  Sex: Female

DRUGS (5)
  1. CYMBALTA [Suspect]
     Active Substance: DULOXETINE HYDROCHLORIDE
     Dosage: 120 MG, UNK
  2. GEODON [Interacting]
     Active Substance: ZIPRASIDONE HYDROCHLORIDE\ZIPRASIDONE MESYLATE
     Dosage: 160 MG, UNK
  3. FELBATOL [Interacting]
     Active Substance: FELBAMATE
     Dosage: 3600 MG, UNK
  4. ZONEGRAN [Interacting]
     Active Substance: ZONISAMIDE
     Dosage: 800 MG, UNK
  5. SABRIL [Interacting]
     Active Substance: VIGABATRIN
     Dosage: 4000 MG, UNK

REACTIONS (2)
  - Seizure [Unknown]
  - Drug interaction [Unknown]
